FAERS Safety Report 8865513 (Version 1)
Quarter: 2012Q4

REPORT INFORMATION
  Report Type: 
  Country: US (occurrence: US)
  Receive Date: 20121024
  Receipt Date: 20121024
  Transmission Date: 20130627
  Serious: No
  Sender: FDA-Public Use
  Company Number: US-AMGEN-USASP2012003277

PATIENT
  Age: 57 Year
  Sex: Male

DRUGS (10)
  1. ENBREL [Suspect]
     Indication: PRODUCT USED FOR UNKNOWN INDICATION
     Dosage: 50 mg, qwk
     Route: 058
  2. MEN^S MULTI [Concomitant]
  3. FISH OIL [Concomitant]
  4. VITAMIN D [Concomitant]
     Dosage: 2000 IU, UNK
  5. ASPIRIN LOW [Concomitant]
     Dosage: 81 mg, UNK
  6. BONIVA [Concomitant]
     Dosage: 2.5 mg, UNK
  7. FOLIC ACID [Concomitant]
  8. MELOXICAM [Concomitant]
     Dosage: 7.5 mg, UNK
  9. METHOTREXATE [Concomitant]
     Dosage: 2.5 mg, UNK
  10. EFFEXOR XR [Concomitant]
     Dosage: 37.5 mg, UNK

REACTIONS (2)
  - Stomatitis [Unknown]
  - Upper respiratory tract infection [Unknown]
